FAERS Safety Report 15954392 (Version 1)
Quarter: 2019Q1

REPORT INFORMATION
  Report Type: Spontaneous
  Country: US (occurrence: US)
  Receive Date: 20190212
  Receipt Date: 20190212
  Transmission Date: 20190417
  Serious: No
  Sender: FDA-Public Use
  Company Number: US-ANIPHARMA-2018-US-006608

PATIENT

DRUGS (1)
  1. REGLAN [Suspect]
     Active Substance: METOCLOPRAMIDE HYDROCHLORIDE
     Indication: PRODUCT USED FOR UNKNOWN INDICATION

REACTIONS (9)
  - Palpitations [Unknown]
  - Pollakiuria [Unknown]
  - Dyskinesia [Unknown]
  - Insomnia [Unknown]
  - Dyspnoea [Unknown]
  - Tachycardia [Unknown]
  - Peripheral swelling [Unknown]
  - Hypersensitivity [Unknown]
  - Tremor [Unknown]
